FAERS Safety Report 6327258-6 (Version None)
Quarter: 2009Q3

REPORT INFORMATION
  Report Type: 
  Country: None (occurrence: None)
  Receive Date: 20090825
  Receipt Date: 20090820
  Transmission Date: 20100115
  Serious: Yes (Death)
  Sender: FDA-Public Use
  Company Number: JP-TEVA-193558ISR

PATIENT
  Sex: Female
  Weight: 47 kg

DRUGS (11)
  1. FLUOROURACIL [Suspect]
     Indication: COLORECTAL CANCER
     Route: 042
     Dates: start: 20081015, end: 20081015
  2. FLUOROURACIL [Suspect]
     Route: 042
     Dates: start: 20081015, end: 20081017
  3. FOLINIC ACID [Suspect]
     Indication: COLORECTAL CANCER
     Route: 042
     Dates: start: 20081015, end: 20081015
  4. SUNITINIB MALATE [Suspect]
     Indication: COLORECTAL CANCER
     Route: 048
     Dates: start: 20081015, end: 20081015
  5. IRINOTECAN HYDROCHLORIDE [Suspect]
     Indication: COLORECTAL CANCER
     Dates: start: 20081015, end: 20081015
  6. MAGNESIUM OXIDE [Concomitant]
  7. DEXAMETHASONE [Concomitant]
     Dates: start: 20081016, end: 20081019
  8. ZOPICLONE [Concomitant]
  9. RAMOSETRON HYDROCHLORIDE [Concomitant]
     Dates: start: 20081015, end: 20081017
  10. LEVOFLOXACIN [Concomitant]
     Dates: start: 20081029, end: 20081029
  11. DEXTROSE 5% AND SODIUM CHLORIDE 0.45% IN PLASTIC CONTAINER [Concomitant]
     Dates: start: 20081029, end: 20081029

REACTIONS (1)
  - MYOCARDIAL INFARCTION [None]
